FAERS Safety Report 9869681 (Version 3)
Quarter: 2014Q2

REPORT INFORMATION
  Report Type: Report from Study
  Country: CA (occurrence: CA)
  Receive Date: 20140205
  Receipt Date: 20140606
  Transmission Date: 20141212
  Serious: Yes (Death, Hospitalization, Other)
  Sender: FDA-Public Use
  Company Number: CA-INCYTE CORPORATION-2014IN000210

PATIENT
  Age: 60 Year
  Sex: Female

DRUGS (12)
  1. JAKAVI [Suspect]
     Indication: MYELOFIBROSIS
     Dosage: 5 MG, BID
     Route: 048
     Dates: start: 20131204
  2. JAKAVI [Suspect]
     Dosage: 5 MG, QD
     Route: 048
  3. JAKAVI [Suspect]
     Dosage: UNK UNK, UNK
     Route: 048
     Dates: end: 20140218
  4. PANTOPRAZOLE [Suspect]
     Dosage: UNK  UNK, UNK
     Route: 065
  5. PANTOPRAZOLE [Suspect]
     Dosage: UNK UKN, UNK
  6. LORAZEPAM [Concomitant]
     Dosage: UNK UKN, UNK
  7. MULTI-VIT [Concomitant]
     Dosage: UNK UKN, UNK
  8. OMEGA 3 [Concomitant]
     Dosage: UNK UKN, UNK
  9. PREDNISONE [Concomitant]
     Dosage: UNK UKN, UNK
  10. HYDROMORPH CONTIN [Concomitant]
     Dosage: UNK UKN, UNK
  11. LYRICA [Concomitant]
     Dosage: UNK UKN, UNK
  12. ANTIBIOTICS [Concomitant]
     Dosage: UNK UKN, UNK

REACTIONS (5)
  - Death [Fatal]
  - Blood urine present [Unknown]
  - Nephrolithiasis [Unknown]
  - Platelet count decreased [Unknown]
  - Haemoglobin decreased [Recovering/Resolving]
